FAERS Safety Report 5451451-8 (Version None)
Quarter: 2007Q3

REPORT INFORMATION
  Report Type: 
  Country: None (occurrence: None)
  Receive Date: 20070913
  Receipt Date: 20070905
  Transmission Date: 20080115
  Serious: Yes (Other)
  Sender: FDA-Public Use
  Company Number: FR-ROCHE-512149

PATIENT
  Sex: Female

DRUGS (2)
  1. ISOTRETINOIN [Suspect]
     Route: 065
  2. ORAL CONTRACEPTIVE PILL [Concomitant]
     Route: 048

REACTIONS (1)
  - ABORTION SPONTANEOUS [None]
